FAERS Safety Report 7896014-X (Version None)
Quarter: 2011Q4

REPORT INFORMATION
  Report Type: 
  Country: None (occurrence: None)
  Receive Date: 20111106
  Receipt Date: 20110902
  Transmission Date: 20120403
  Serious: No
  Sender: FDA-Public Use
  Company Number: US-AMGEN-USASP2011045362

PATIENT
  Sex: Female

DRUGS (5)
  1. METHOTREXATE [Concomitant]
     Dosage: 2.5 MG, UNK
  2. PREDNISONE [Concomitant]
     Dosage: 10 MG, UNK
  3. ENBREL [Suspect]
     Indication: PRODUCT USED FOR UNKNOWN INDICATION
     Dosage: 50 MG, QWK
  4. TYLENOL-500 [Concomitant]
     Dosage: 500 MG, UNK
  5. FOLIC ACID [Concomitant]
     Dosage: 1 MG, UNK

REACTIONS (1)
  - INJECTION SITE RASH [None]
